FAERS Safety Report 24859108 (Version 1)
Quarter: 2025Q1

REPORT INFORMATION
  Report Type: Spontaneous
  Country: US (occurrence: US)
  Receive Date: 20250118
  Receipt Date: 20250118
  Transmission Date: 20250409
  Serious: Yes (Hospitalization)
  Sender: BIONPHARMA INC.
  Company Number: US-Bion-014650

PATIENT
  Sex: Female

DRUGS (1)
  1. IBUPROFEN [Suspect]
     Active Substance: IBUPROFEN
     Indication: Myalgia
     Dates: start: 20250107

REACTIONS (4)
  - Inappropriate schedule of product administration [Unknown]
  - Pharyngeal swelling [Unknown]
  - Dysphagia [Unknown]
  - Dyspnoea [Unknown]
